FAERS Safety Report 17859666 (Version 2)
Quarter: 2020Q3

REPORT INFORMATION
  Report Type: Spontaneous
  Country: US (occurrence: US)
  Receive Date: 20200604
  Receipt Date: 20200921
  Transmission Date: 20201103
  Serious: No
  Sender: FDA-Public Use
  Company Number: US-PFIZER INC-2020-07632

PATIENT
  Age: 68 Year
  Sex: Female

DRUGS (3)
  1. MEKTOVI [Suspect]
     Active Substance: BINIMETINIB
     Indication: MALIGNANT MELANOMA
     Dosage: 45 MG, 2X/DAY (ONCE EVERY 12 HOURS)
     Route: 048
     Dates: start: 20200222
  2. BRAFTOVI [Suspect]
     Active Substance: ENCORAFENIB
     Dosage: 450 MG, 1X/DAY
     Dates: start: 20200222
  3. BRAFTOVI [Suspect]
     Active Substance: ENCORAFENIB
     Indication: MALIGNANT MELANOMA
     Dosage: 450 MG, 1X/DAY (TAKE 6 CAPSULES ONCE DAILY)
     Route: 048
     Dates: start: 20200222

REACTIONS (5)
  - Onychomycosis [Unknown]
  - Vitreous floaters [Unknown]
  - Tongue coated [Unknown]
  - Headache [Unknown]
  - Colitis [Unknown]
